FAERS Safety Report 8969665 (Version 2)
Quarter: 2012Q4

REPORT INFORMATION
  Report Type: 
  Country: CL (occurrence: CL)
  Receive Date: 20121218
  Receipt Date: 20121224
  Transmission Date: 20130627
  Serious: Yes (Other)
  Sender: FDA-Public Use
  Company Number: PHHY2012CL115945

PATIENT
  Age: 42 Year
  Sex: Female

DRUGS (1)
  1. DICLOFENAC [Suspect]

REACTIONS (2)
  - Linear IgA disease [Recovered/Resolved]
  - Blister [Unknown]
